FAERS Safety Report 20648546 (Version 1)
Quarter: 2022Q1

REPORT INFORMATION
  Report Type: Spontaneous
  Country: US (occurrence: US)
  Receive Date: 20220329
  Receipt Date: 20220329
  Transmission Date: 20220423
  Serious: No
  Sender: FDA-Public Use
  Company Number: US-GALDERMA-US2022003101

PATIENT

DRUGS (1)
  1. DIFFERIN GEL [Suspect]
     Active Substance: ADAPALENE
     Indication: Product used for unknown indication
     Dosage: 1 DOSAGE FORM
     Route: 061

REACTIONS (6)
  - Pruritus [Unknown]
  - Swelling face [Unknown]
  - Skin exfoliation [Unknown]
  - Swelling of eyelid [Unknown]
  - Skin wrinkling [Unknown]
  - Eyelids pruritus [Unknown]
